FAERS Safety Report 7808892-0 (Version None)
Quarter: 2011Q4

REPORT INFORMATION
  Report Type: 
  Country: None (occurrence: None)
  Receive Date: 20111012
  Receipt Date: 20111012
  Transmission Date: 20120403
  Serious: Yes (Hospitalization)
  Sender: FDA-Public Use
  Company Number: PHHO2008US08813

PATIENT
  Sex: Female
  Weight: 46.6 kg

DRUGS (7)
  1. ALPRAZOLAM [Concomitant]
     Indication: ANXIETY
     Dosage: UNK
     Dates: start: 20080508
  2. FOSAMAX [Concomitant]
     Indication: OSTEOPOROSIS
  3. CALCIUM CARBONATE [Concomitant]
  4. XANAX [Concomitant]
  5. GILENYA [Suspect]
     Indication: MULTIPLE SCLEROSIS
     Dosage: 1.25 MG, UNK
     Route: 048
     Dates: start: 20071219
  6. LISINOPRIL [Concomitant]
     Indication: HYPERTENSION
     Dosage: 25 MG, UNK
     Route: 048
     Dates: start: 20071120
  7. BELARA [Concomitant]
     Indication: CONTRACEPTION

REACTIONS (2)
  - CHEST PAIN [None]
  - PALPITATIONS [None]
